FAERS Safety Report 9542279 (Version 2)
Quarter: 2014Q1

REPORT INFORMATION
  Report Type: Spontaneous
  Country: GB (occurrence: None)
  Receive Date: 20130918
  Receipt Date: 20140113
  Transmission Date: 20141002
  Serious: Yes (Hospitalization, Other)
  Sender: FDA-Public Use
  Company Number: CO-OR-UK-2013-065

PATIENT
  Age: 50 Year
  Sex: Female

DRUGS (4)
  1. PREDNISOLONE [Suspect]
     Indication: IMMUNOSUPPRESSANT DRUG THERAPY
  2. CICLOSPORIN (CICLOSPORIN) [Concomitant]
  3. MYCOPHENOLATE (MYCOPHENOLATE MOFETIL) [Concomitant]
  4. TACROLIMUS (TACROLIMUS) [Concomitant]

REACTIONS (6)
  - Hypertrichosis [None]
  - Folliculitis [None]
  - Hormone-secreting ovarian tumour [None]
  - Alopecia [None]
  - Acne [None]
  - Blood androstenedione increased [None]
